FAERS Safety Report 7611128-7 (Version None)
Quarter: 2011Q3

REPORT INFORMATION
  Report Type: 
  Country: None (occurrence: None)
  Receive Date: 20110715
  Receipt Date: 20110707
  Transmission Date: 20111222
  Serious: Yes (Hospitalization, Other)
  Sender: FDA-Public Use
  Company Number: BR-NOVOPROD-330672

PATIENT
  Age: 64 Year
  Sex: Male

DRUGS (2)
  1. VICTOZA [Suspect]
     Indication: TYPE 2 DIABETES MELLITUS
     Dosage: 0.6 MG, QD
     Route: 065
     Dates: start: 20110101
  2. VICTOZA [Suspect]
     Dosage: 1.2 MG, QD
     Route: 065
     Dates: end: 20110624

REACTIONS (2)
  - PANCREATITIS ACUTE [None]
  - PLEURAL EFFUSION [None]
